FAERS Safety Report 15002511 (Version 1)
Quarter: 2018Q2

REPORT INFORMATION
  Report Type: Spontaneous
  Country: JP (occurrence: JP)
  Receive Date: 20180612
  Receipt Date: 20180612
  Transmission Date: 20180711
  Serious: Yes (Other)
  Sender: FDA-Public Use
  Company Number: JP-MYLANLABS-2018M1039120

PATIENT
  Age: 73 Year
  Sex: Female
  Weight: 46 kg

DRUGS (6)
  1. RINDERON                           /00008501/ [Suspect]
     Active Substance: BETAMETHASONE
     Dosage: 0.5 MG, UNK
     Route: 048
     Dates: start: 20170519, end: 20170713
  2. RINDERON                           /00008501/ [Suspect]
     Active Substance: BETAMETHASONE
     Dosage: 1 MG, QD
     Route: 048
     Dates: start: 20170714, end: 20180404
  3. RINDERON                           /00008501/ [Suspect]
     Active Substance: BETAMETHASONE
     Dosage: .25 MG, UNK
     Route: 048
     Dates: start: 20170223, end: 20170518
  4. MEDROL [Suspect]
     Active Substance: METHYLPREDNISOLONE
     Indication: POLYMYALGIA RHEUMATICA
     Dosage: 12 MG, QD
     Route: 048
     Dates: start: 20180405
  5. PREDNISOLONE. [Suspect]
     Active Substance: PREDNISOLONE
     Indication: POLYMYALGIA RHEUMATICA
     Dosage: 20 MG, UNK
     Route: 048
     Dates: start: 201210, end: 201409
  6. RINDERON                           /00008501/ [Suspect]
     Active Substance: BETAMETHASONE
     Indication: POLYMYALGIA RHEUMATICA
     Dosage: 1.5 MG, UNK
     Route: 048
     Dates: start: 201411

REACTIONS (5)
  - Gastric cancer [Recovered/Resolved]
  - Skin fragility [Unknown]
  - Arterial bypass stenosis [Unknown]
  - Osteoporosis [Unknown]
  - Lumbar spinal stenosis [Unknown]

NARRATIVE: CASE EVENT DATE: 201608
